FAERS Safety Report 12064931 (Version 1)
Quarter: 2016Q1

REPORT INFORMATION
  Report Type: Spontaneous
  Country: US (occurrence: US)
  Receive Date: 20160210
  Receipt Date: 20160210
  Transmission Date: 20160526
  Serious: No
  Sender: FDA-Public Use
  Company Number: US-ALLERGAN-1512427US

PATIENT
  Age: 47 Year
  Sex: Female
  Weight: 58.5 kg

DRUGS (5)
  1. JUVEDERM [Suspect]
     Active Substance: HYALURONIC ACID
     Indication: SKIN WRINKLING
     Dosage: UNK, UNKNOWN
     Dates: start: 20150106
  2. VITAMIN C [Concomitant]
     Active Substance: ASCORBIC ACID
     Dosage: UNK, UNKNOWN
     Route: 048
  3. ALPRAZOLAM. [Concomitant]
     Active Substance: ALPRAZOLAM
     Indication: ANXIETY
     Dosage: UNK UNK, UNKNOWN
     Route: 048
  4. BOTOX [Suspect]
     Active Substance: ONABOTULINUMTOXINA
     Indication: SKIN WRINKLING
     Dosage: 18 UNITS, SINGLE
     Route: 030
     Dates: start: 20150106, end: 20150106
  5. MAGNESIUM [Concomitant]
     Active Substance: MAGNESIUM
     Dosage: UNK UNK, UNKNOWN
     Route: 048

REACTIONS (15)
  - Anxiety [Unknown]
  - Head discomfort [Unknown]
  - Paranasal sinus discomfort [Unknown]
  - Dizziness [Unknown]
  - Vision blurred [Unknown]
  - Discomfort [Unknown]
  - Disturbance in attention [Unknown]
  - Chest discomfort [Unknown]
  - Muscular weakness [Unknown]
  - Weight decreased [Unknown]
  - Confusional state [Unknown]
  - Dyspnoea [Unknown]
  - Headache [Unknown]
  - Activities of daily living impaired [Unknown]
  - Myalgia [Unknown]

NARRATIVE: CASE EVENT DATE: 20150107
